FAERS Safety Report 12848181 (Version 1)
Quarter: 2016Q4

REPORT INFORMATION
  Report Type: Spontaneous
  Country: US (occurrence: US)
  Receive Date: 20161014
  Receipt Date: 20161014
  Transmission Date: 20170207
  Serious: No
  Sender: FDA-Public Use
  Company Number: US-JNJFOC-20160716124

PATIENT
  Age: 86 Year
  Sex: Male
  Weight: 65.77 kg

DRUGS (1)
  1. TYLENOL EXTRA STRENGTH [Suspect]
     Active Substance: ACETAMINOPHEN
     Indication: PAIN
     Dosage: 1-2 CAPLETS, NIGHTLY
     Route: 048

REACTIONS (2)
  - Incorrect drug administration duration [Unknown]
  - Product packaging issue [Unknown]
